FAERS Safety Report 20641946 (Version 3)
Quarter: 2023Q2

REPORT INFORMATION
  Report Type: Report from Study
  Country: US (occurrence: US)
  Receive Date: 20220328
  Receipt Date: 20230517
  Transmission Date: 20230722
  Serious: Yes (Other)
  Sender: FDA-Public Use
  Company Number: US-KYOWAKIRIN-2022BKK004019

PATIENT

DRUGS (2)
  1. CRYSVITA [Suspect]
     Active Substance: BUROSUMAB-TWZA
     Indication: Hereditary hypophosphataemic rickets
     Dosage: UNK, 1X/4 WEEKS
     Route: 065
     Dates: start: 20190515
  2. CRYSVITA [Suspect]
     Active Substance: BUROSUMAB-TWZA
     Dosage: 90 MG, 1X/4 WEEKS
     Route: 065
     Dates: start: 20190821

REACTIONS (6)
  - Drug withdrawal convulsions [Unknown]
  - Withdrawal syndrome [Unknown]
  - Skin burning sensation [Unknown]
  - Exposure to SARS-CoV-2 [Unknown]
  - Gastroenteritis viral [Unknown]
  - Muscle spasms [Unknown]
